FAERS Safety Report 11603390 (Version 1)
Quarter: 2015Q4

REPORT INFORMATION
  Report Type: Spontaneous
  Country: US (occurrence: None)
  Receive Date: 20151005
  Receipt Date: 20151005
  Transmission Date: 20160304
  Serious: Yes (Hospitalization)
  Sender: FDA-Public Use
  Company Number: None

PATIENT
  Age: 63 Year
  Sex: Female
  Weight: 59.6 kg

DRUGS (2)
  1. ETOPOSIDE (VP-16) [Suspect]
     Active Substance: ETOPOSIDE
     Dates: end: 20150410
  2. CISPLATIN. [Suspect]
     Active Substance: CISPLATIN
     Dates: end: 20150408

REACTIONS (3)
  - Pulmonary embolism [None]
  - Anaemia [None]
  - Pneumonia aspiration [None]

NARRATIVE: CASE EVENT DATE: 20150501
